FAERS Safety Report 5616405-7 (Version None)
Quarter: 2008Q1

REPORT INFORMATION
  Report Type: 
  Country: None (occurrence: None)
  Receive Date: 20080207
  Receipt Date: 20080129
  Transmission Date: 20080703
  Serious: Yes (Hospitalization, Other)
  Sender: FDA-Public Use
  Company Number: GB-JNJFOC-20080104920

PATIENT
  Sex: Male
  Weight: 89 kg

DRUGS (9)
  1. REMICADE [Suspect]
     Route: 042
  2. REMICADE [Suspect]
     Indication: RHEUMATOID ARTHRITIS
     Route: 042
  3. TRAMADOL HCL [Concomitant]
  4. METHOTREXATE [Concomitant]
  5. PREDNISOLONE [Concomitant]
  6. BONDROFLUAZIDE [Concomitant]
  7. CALCICHEW [Concomitant]
  8. LANSOPRAZOLE [Concomitant]
  9. LOSARTAN POTASSIUM [Concomitant]

REACTIONS (2)
  - ATRIAL FLUTTER [None]
  - DIZZINESS [None]
